FAERS Safety Report 9955044 (Version 2)
Quarter: 2014Q1

REPORT INFORMATION
  Report Type: Spontaneous
  Country: PR (occurrence: PR)
  Receive Date: 20140304
  Receipt Date: 20140304
  Transmission Date: 20141002
  Serious: No
  Sender: FDA-Public Use
  Company Number: PR-ABBVIE-12P-131-1001798-00

PATIENT
  Age: 64 Year
  Sex: Female
  Weight: 78.09 kg

DRUGS (11)
  1. HUMIRA [Suspect]
     Indication: RHEUMATOID ARTHRITIS
     Route: 058
     Dates: start: 2006
  2. HUMIRA [Suspect]
     Indication: RHEUMATOID ARTHRITIS
     Route: 058
     Dates: start: 20120614, end: 20121025
  3. HUMIRA [Suspect]
     Route: 058
     Dates: start: 20130117, end: 20130214
  4. HUMIRA [Suspect]
     Route: 058
     Dates: start: 20130314
  5. SYNTHROID [Concomitant]
     Indication: HYPOTHYROIDISM
     Route: 048
  6. FOLIC ACID [Concomitant]
     Indication: THALASSAEMIA BETA
     Route: 048
  7. PRILOSEC [Concomitant]
     Indication: GASTRITIS
     Dosage: AS NEEDED
     Route: 048
  8. PROTONIX [Concomitant]
     Indication: GASTRITIS
     Dosage: AS NEEDED
     Route: 048
  9. HYDROTHIAZIDE [Concomitant]
     Indication: HYPERTENSION
     Route: 048
  10. ATACAND [Concomitant]
     Indication: HYPERTENSION
     Route: 048
  11. METHOTREXATE [Concomitant]
     Indication: RHEUMATOID ARTHRITIS
     Dosage: 15 MGS ONCE A WEEK
     Route: 048

REACTIONS (4)
  - Urinary tract infection [Recovered/Resolved]
  - Urinary tract infection [Recovered/Resolved]
  - Oropharyngeal pain [Recovered/Resolved]
  - Nasopharyngitis [Recovered/Resolved]
